FAERS Safety Report 24062042 (Version 1)
Quarter: 2024Q3

REPORT INFORMATION
  Report Type: Spontaneous
  Country: US (occurrence: None)
  Receive Date: 20240707
  Receipt Date: 20240707
  Transmission Date: 20241017
  Serious: Yes (Death, Life-Threatening, Hospitalization, Disabling)
  Sender: Public
  Company Number: None

PATIENT
  Age: 77 Year
  Sex: Male
  Weight: 81 kg

DRUGS (6)
  1. KEYTRUDA [Suspect]
     Active Substance: PEMBROLIZUMAB
     Indication: Non-small cell lung cancer
     Dosage: OTHER QUANTITY : 1 200 MG BAG;?OTHER FREQUENCY : ONE INFUSION;?OTHER ROUTE : I.V. INFUSION;?
     Route: 050
     Dates: start: 20240424
  2. DIFLUCAN [Concomitant]
     Active Substance: FLUCONAZOLE
  3. LEVOTHYROXINE [Concomitant]
     Active Substance: LEVOTHYROXINE\LEVOTHYROXINE SODIUM
  4. PROSCAR [Concomitant]
     Active Substance: FINASTERIDE
  5. carbodopa/levodopa (Sinemet) [Concomitant]
  6. VITAMINS [Concomitant]
     Active Substance: VITAMINS

REACTIONS (8)
  - Dyspnoea [None]
  - Asthenia [None]
  - Eyelid ptosis [None]
  - Acute myocardial infarction [None]
  - Cardiac arrest [None]
  - Myasthenic syndrome [None]
  - Myositis [None]
  - Myocarditis [None]

NARRATIVE: CASE EVENT DATE: 20240424
